FAERS Safety Report 10390001 (Version 2)
Quarter: 2014Q4

REPORT INFORMATION
  Report Type: Spontaneous
  Country: GB (occurrence: GB)
  Receive Date: 20140818
  Receipt Date: 20141006
  Transmission Date: 20150528
  Serious: Yes (Death, Hospitalization)
  Sender: FDA-Public Use
  Company Number: GB-SA-2014SA108280

PATIENT
  Age: 82 Year
  Sex: Male

DRUGS (2)
  1. ATORVASTATIN [Concomitant]
     Active Substance: ATORVASTATIN
     Indication: HYPERCHOLESTEROLAEMIA
     Route: 048
  2. JEVTANA [Suspect]
     Active Substance: CABAZITAXEL
     Indication: PROSTATE CANCER METASTATIC
     Dosage: T/T STOP DATE?EITHER VERY END OF JULY OR VERY BEGINNING OF AUGUST 2014
     Route: 042
     Dates: start: 20140721

REACTIONS (6)
  - Neutropenia [Recovered/Resolved]
  - Renal failure [Fatal]
  - Hypotension [Fatal]
  - Myocardial infarction [Fatal]
  - Cardiogenic shock [Fatal]
  - Pyrexia [Fatal]

NARRATIVE: CASE EVENT DATE: 201407
